FAERS Safety Report 8675666 (Version 2)
Quarter: 2013Q1

REPORT INFORMATION
  Report Type: Spontaneous
  Country: SE (occurrence: SE)
  Receive Date: 20120720
  Receipt Date: 20130123
  Transmission Date: 20140127
  Serious: Yes (Other)
  Sender: FDA-Public Use
  Company Number: PHHY2012SE061547

PATIENT
  Sex: Female

DRUGS (1)
  1. TRAMADOL [Suspect]
     Indication: BACK PAIN
     Route: 048
     Dates: end: 20120323

REACTIONS (2)
  - Cardiac failure [Unknown]
  - Oedema peripheral [Unknown]
